FAERS Safety Report 7889029-9 (Version None)
Quarter: 2011Q4

REPORT INFORMATION
  Report Type: 
  Country: None (occurrence: None)
  Receive Date: 20111103
  Receipt Date: 20111028
  Transmission Date: 20120403
  Serious: Yes (Other)
  Sender: FDA-Public Use
  Company Number: DE-ROCHE-1008773

PATIENT
  Sex: Female

DRUGS (3)
  1. PACLITAXEL [Concomitant]
     Indication: BREAST CANCER
     Route: 042
  2. HERCEPTIN [Suspect]
     Indication: BREAST CANCER
     Route: 042
     Dates: start: 20110701
  3. HERCEPTIN [Suspect]
     Route: 042

REACTIONS (4)
  - OEDEMA PERIPHERAL [None]
  - ARTHRALGIA [None]
  - DRY EYE [None]
  - MUSCULOSKELETAL STIFFNESS [None]
